FAERS Safety Report 5162869-5 (Version None)
Quarter: 2006Q4

REPORT INFORMATION
  Report Type: 
  Country: None (occurrence: None)
  Receive Date: 20061201
  Receipt Date: 20061121
  Transmission Date: 20070319
  Serious: Yes (Hospitalization)
  Sender: FDA-Public Use
  Company Number: FR-GLAXOSMITHKLINE-B0448566A

PATIENT
  Sex: Male
  Weight: 2.3 kg

DRUGS (6)
  1. DEROXAT [Suspect]
     Indication: DEPRESSION
     Dosage: 20MG PER DAY
     Dates: start: 20050101, end: 20060302
  2. PAROXETINE HYDROCHLORIDE [Suspect]
     Indication: DEPRESSION
     Dosage: 20MG PER DAY
     Dates: start: 20060201, end: 20060301
  3. SERESTA [Suspect]
     Indication: DEPRESSION
     Route: 050
     Dates: start: 20050101, end: 20060302
  4. SERESTA [Suspect]
     Dates: start: 20060201, end: 20060301
  5. XANAX [Concomitant]
     Indication: DEPRESSION
     Dates: start: 20050101, end: 20050101
  6. INSULIN [Concomitant]
     Indication: GESTATIONAL DIABETES
     Dates: start: 20050101

REACTIONS (11)
  - CAESAREAN SECTION [None]
  - DRUG EXPOSURE DURING PREGNANCY [None]
  - DRUG EXPOSURE VIA BREAST MILK [None]
  - FEEDING DISORDER NEONATAL [None]
  - FOETAL GROWTH RETARDATION [None]
  - FOETAL MOVEMENTS DECREASED [None]
  - HYPERCALCAEMIA [None]
  - HYPERTHERMIA [None]
  - HYPOTONIA NEONATAL [None]
  - SOMNOLENCE [None]
  - WEIGHT DECREASE NEONATAL [None]
